FAERS Safety Report 5897484-9 (Version None)
Quarter: 2008Q3

REPORT INFORMATION
  Report Type: 
  Country: None (occurrence: None)
  Receive Date: 20080917
  Receipt Date: 20071126
  Transmission Date: 20090109
  Serious: Yes (Disabling)
  Sender: FDA-Public Use
  Company Number: PHEH2007US15159

PATIENT
  Age: 64 Year
  Sex: Female

DRUGS (5)
  1. FEMARA [Suspect]
     Indication: BREAST CANCER
     Dosage: 2.5 MG, QD, ORAL
     Route: 048
     Dates: start: 20070301, end: 20070901
  2. NIFEDICAL (NIFEDIPINE) [Concomitant]
  3. NEXIUM [Concomitant]
  4. HYDROCHLOROTHIAZIDE [Concomitant]
  5. POTASSIUM CHLORIDE [Concomitant]

REACTIONS (3)
  - ABASIA [None]
  - ARTHRALGIA [None]
  - GAIT DISTURBANCE [None]
